FAERS Safety Report 20518818 (Version 1)
Quarter: 2022Q1

REPORT INFORMATION
  Report Type: Spontaneous
  Country: US (occurrence: US)
  Receive Date: 20220225
  Receipt Date: 20220225
  Transmission Date: 20220423
  Serious: No
  Sender: FDA-Public Use
  Company Number: US-BAYER-2022A027051

PATIENT
  Age: 20 Year
  Sex: Male

DRUGS (4)
  1. KOGENATE FS [Suspect]
     Active Substance: ANTIHEMOPHILIC FACTOR, HUMAN RECOMBINANT
     Dosage: 7400 IU
  2. KOGENATE FS [Suspect]
     Active Substance: ANTIHEMOPHILIC FACTOR, HUMAN RECOMBINANT
     Dosage: UNK, FOR THE RIGHT LEG INJURY TREATMENT
     Dates: start: 20220214, end: 20220214
  3. KOGENATE FS [Suspect]
     Active Substance: ANTIHEMOPHILIC FACTOR, HUMAN RECOMBINANT
     Dosage: UNK, BID, FOR THE RIGHT LEG INJURY TREATMENT
     Dates: start: 20220215, end: 20220215
  4. KOGENATE FS [Suspect]
     Active Substance: ANTIHEMOPHILIC FACTOR, HUMAN RECOMBINANT
     Dosage: UNK, QD, FOR THE RIGHT LEG INJURY TREATMENT
     Dates: start: 20220221

REACTIONS (2)
  - Limb injury [None]
  - Suture insertion [None]

NARRATIVE: CASE EVENT DATE: 20220214
